FAERS Safety Report 17963273 (Version 1)
Quarter: 2020Q2

REPORT INFORMATION
  Report Type: Report from Study
  Country: None (occurrence: US)
  Receive Date: 20200630
  Receipt Date: 20200630
  Transmission Date: 20200714
  Serious: Yes (Other)
  Sender: FDA-Public Use
  Company Number: US-BIOVITRUM-2019US3537

PATIENT
  Sex: Female

DRUGS (1)
  1. KINERET [Suspect]
     Active Substance: ANAKINRA
     Indication: RHEUMATOID ARTHRITIS
     Route: 058
     Dates: start: 20191015

REACTIONS (6)
  - Bronchitis [Unknown]
  - Visual impairment [Unknown]
  - Vitamin D deficiency [Unknown]
  - Neoplasm malignant [Unknown]
  - Hypersensitivity [Unknown]
  - Dysphonia [Unknown]
